FAERS Safety Report 6590355-4 (Version None)
Quarter: 2010Q1

REPORT INFORMATION
  Report Type: 
  Country: None (occurrence: None)
  Receive Date: 20100219
  Receipt Date: 20100209
  Transmission Date: 20100710
  Serious: Yes (Other)
  Sender: FDA-Public Use
  Company Number: US-SANOFI-AVENTIS-2010SA008891

PATIENT
  Sex: Male

DRUGS (5)
  1. ELOXATIN [Suspect]
     Indication: COLON CANCER
     Route: 042
     Dates: start: 20090811
  2. ELOXATIN [Suspect]
     Route: 042
     Dates: start: 20091116, end: 20091116
  3. ELOXATIN [Suspect]
     Route: 042
  4. LEUCOVORIN CALCIUM [Suspect]
     Indication: COLON CANCER
     Route: 065
     Dates: start: 20090811
  5. 5-FU [Suspect]
     Indication: COLON CANCER
     Route: 065
     Dates: start: 20090811

REACTIONS (5)
  - DIAPHRAGMATIC PARALYSIS [None]
  - DIARRHOEA [None]
  - DYSPNOEA [None]
  - NAUSEA [None]
  - STOMATITIS [None]
